FAERS Safety Report 11426969 (Version 1)
Quarter: 2015Q3

REPORT INFORMATION
  Report Type: Spontaneous
  Country: US (occurrence: US)
  Receive Date: 20150821
  Receipt Date: 20150821
  Transmission Date: 20151125
  Serious: No
  Sender: FDA-Public Use
  Company Number: US-ELI_LILLY_AND_COMPANY-US201308007125

PATIENT
  Age: 78 Year
  Sex: Male

DRUGS (5)
  1. CIALIS [Suspect]
     Active Substance: TADALAFIL
     Dosage: 60 MG, UNKNOWN
  2. TAMSULOSIN [Concomitant]
     Active Substance: TAMSULOSIN
     Dosage: 0.8 MG, UNKNOWN
  3. CIALIS [Suspect]
     Active Substance: TADALAFIL
     Indication: ERECTILE DYSFUNCTION
     Dosage: 40 MG, UNKNOWN
     Dates: start: 2012
  4. CIALIS [Suspect]
     Active Substance: TADALAFIL
     Dosage: 120 MG, UNKNOWN
  5. TAMSULOSIN [Concomitant]
     Active Substance: TAMSULOSIN
     Dosage: 0.4 MG, UNKNOWN

REACTIONS (2)
  - Overdose [Unknown]
  - Counterfeit drug administered [Unknown]
